APPROVED DRUG PRODUCT: LACOSAMIDE
Active Ingredient: LACOSAMIDE
Strength: 150MG
Dosage Form/Route: TABLET;ORAL
Application: A208466 | Product #003 | TE Code: AB
Applicant: MACLEODS PHARMACEUTICALS LTD
Approved: May 24, 2024 | RLD: No | RS: No | Type: RX